FAERS Safety Report 9593568 (Version 1)
Quarter: 2013Q3

REPORT INFORMATION
  Report Type: Spontaneous
  Country: US (occurrence: None)
  Receive Date: 20130930
  Receipt Date: 20130930
  Transmission Date: 20140515
  Serious: Yes (Other)
  Sender: FDA-Public Use
  Company Number: 1000045899

PATIENT
  Age: 74 Year
  Sex: Female
  Weight: 61.2 kg

DRUGS (6)
  1. LINZESS (LINACLOTIDE) (290 MICROGRAM, CAPSULES) [Suspect]
     Indication: CONSTIPATION
     Dosage: 290 MCG, 1 IN 1 D
     Route: 048
     Dates: start: 201305
  2. ATORVASTATIN [Concomitant]
  3. ASPIRIN [Concomitant]
  4. ASPIRIN [Concomitant]
  5. VITAMIN D [Concomitant]
  6. MILK OF MAGNESIA [Concomitant]

REACTIONS (3)
  - Faecal incontinence [None]
  - Abdominal distension [None]
  - Weight increased [None]
